FAERS Safety Report 9319599 (Version 1)
Quarter: 2013Q2

REPORT INFORMATION
  Report Type: Spontaneous
  Country: US (occurrence: US)
  Receive Date: 20130530
  Receipt Date: 20130530
  Transmission Date: 20140414
  Serious: Yes (Death, Hospitalization)
  Sender: FDA-Public Use
  Company Number: US-GLAXOSMITHKLINE-A1010851A

PATIENT
  Age: 44 Year
  Sex: Female

DRUGS (4)
  1. FLOLAN [Suspect]
     Indication: PULMONARY ARTERIAL HYPERTENSION
     Dosage: 57.5NGKM CONTINUOUS
     Route: 065
     Dates: start: 20080813
  2. MIDODRINE [Concomitant]
     Route: 048
  3. UNKNOWN MEDICATION [Concomitant]
     Route: 048
  4. TRACLEER [Concomitant]

REACTIONS (11)
  - Hypoaesthesia [Unknown]
  - Back pain [Unknown]
  - Non-cardiac chest pain [Unknown]
  - Chest pain [Unknown]
  - Abdominal distension [Unknown]
  - Dyspnoea [Unknown]
  - Dizziness [Unknown]
  - Oedema [Unknown]
  - Palpitations [Unknown]
  - Dyspnoea exertional [Unknown]
  - Cardiac arrest [Fatal]
